FAERS Safety Report 6146515-X (Version None)
Quarter: 2009Q2

REPORT INFORMATION
  Report Type: 
  Country: None (occurrence: None)
  Receive Date: 20090403
  Receipt Date: 20090403
  Transmission Date: 20091009
  Serious: No
  Sender: FDA-Public Use
  Company Number: None

PATIENT
  Age: 54 Year
  Sex: Female
  Weight: 67.1324 kg

DRUGS (2)
  1. CYMBALTA [Suspect]
     Indication: MENOPAUSE
     Dosage: 30 MG ONCE A DAY MOUTH
     Dates: start: 20060216, end: 20090301
  2. CYMBALTA [Suspect]
     Indication: MIGRAINE
     Dosage: 30 MG ONCE A DAY MOUTH
     Dates: start: 20060216, end: 20090301

REACTIONS (11)
  - ANGER [None]
  - DISSOCIATION [None]
  - DIZZINESS [None]
  - FEAR [None]
  - FEELING ABNORMAL [None]
  - HEADACHE [None]
  - INSOMNIA [None]
  - NAUSEA [None]
  - NIGHTMARE [None]
  - VOMITING [None]
  - WITHDRAWAL SYNDROME [None]
